FAERS Safety Report 16410689 (Version 1)
Quarter: 2019Q3

REPORT INFORMATION
  Report Type: Spontaneous
  Country: US (occurrence: US)
  Receive Date: 20190608
  Receipt Date: 20190608
  Transmission Date: 20191004
  Serious: No
  Sender: FDA-Public Use
  Company Number: None

PATIENT
  Sex: Male
  Weight: 96.75 kg

DRUGS (1)
  1. PERRIGO TESTOSTERONE GEL 1.62% [Suspect]
     Active Substance: TESTOSTERONE
     Indication: BLOOD TESTOSTERONE DECREASED
     Dosage: ?          QUANTITY:5 2 PACKETS PER DAY;?
     Route: 061
     Dates: start: 20190524

REACTIONS (6)
  - Fatigue [None]
  - Product use complaint [None]
  - Dermal absorption impaired [None]
  - Packaging design issue [None]
  - Asthenia [None]
  - Product substitution issue [None]
